FAERS Safety Report 10794448 (Version 3)
Quarter: 2015Q2

REPORT INFORMATION
  Report Type: Spontaneous
  Country: US (occurrence: US)
  Receive Date: 20150213
  Receipt Date: 20150520
  Transmission Date: 20150821
  Serious: Yes (Hospitalization, Other)
  Sender: FDA-Public Use
  Company Number: US-PFIZER INC-2015054848

PATIENT
  Age: 74 Year
  Sex: Female
  Weight: 55 kg

DRUGS (7)
  1. SIMVASTATIN. [Concomitant]
     Active Substance: SIMVASTATIN
     Indication: CARDIOVASCULAR DISORDER
     Dosage: 20 MG, DAILY
     Route: 048
     Dates: start: 2014
  2. LYRICA [Suspect]
     Active Substance: PREGABALIN
     Indication: NEURALGIA
     Dosage: 50 MG, 3X/DAY
     Route: 048
     Dates: start: 2013
  3. SENNALAX [Concomitant]
     Indication: CONSTIPATION
     Dosage: 86 MG, DAILY AS NEEDED
     Route: 048
     Dates: start: 2014
  4. CITALOPRAM [Concomitant]
     Active Substance: CITALOPRAM HYDROBROMIDE
     Indication: BLOOD PRESSURE
     Dosage: 40MG TABLET, 1+1/2 TABLET DAILY
     Route: 048
     Dates: start: 2012
  5. BACLOFEN. [Concomitant]
     Active Substance: BACLOFEN
     Indication: BREAKTHROUGH PAIN
     Dosage: 10 MG, 2X/DAY
     Route: 048
     Dates: start: 2013
  6. BACLOFEN. [Concomitant]
     Active Substance: BACLOFEN
     Indication: MYALGIA
  7. PROCARDIA [Concomitant]
     Active Substance: NIFEDIPINE
     Indication: HYPERTENSION
     Dosage: 60 MG, DAILY
     Route: 048

REACTIONS (1)
  - Cholecystitis infective [Recovered/Resolved]
